FAERS Safety Report 12517209 (Version 3)
Quarter: 2016Q4

REPORT INFORMATION
  Report Type: Spontaneous
  Country: US (occurrence: US)
  Receive Date: 20160630
  Receipt Date: 20161017
  Transmission Date: 20170207
  Serious: Yes (Death, Hospitalization, Other)
  Sender: FDA-Public Use
  Company Number: US-TEVA-670820USA

PATIENT
  Age: 69 Year
  Sex: Male
  Weight: 99.88 kg

DRUGS (1)
  1. SYNRIBO [Suspect]
     Active Substance: OMACETAXINE MEPESUCCINATE
     Indication: CHRONIC MYELOID LEUKAEMIA
     Dosage: HOME ADMINISTRATION
     Dates: start: 20160617, end: 20160618

REACTIONS (2)
  - Renal failure [Unknown]
  - Death [Fatal]

NARRATIVE: CASE EVENT DATE: 20160618
